FAERS Safety Report 19795294 (Version 1)
Quarter: 2021Q3

REPORT INFORMATION
  Report Type: Report from Study
  Country: IT (occurrence: IT)
  Receive Date: 20210907
  Receipt Date: 20210907
  Transmission Date: 20211014
  Serious: Yes (Hospitalization)
  Sender: FDA-Public Use
  Company Number: IT-TEVA-2021-IT-1948479

PATIENT
  Age: 58 Year
  Sex: Male

DRUGS (8)
  1. CARDIOASPIRIN 100 MG COMPRESSE GASTRORESISTENTI [Concomitant]
     Active Substance: ASPIRIN
  2. PANTORC 40 MG COMPRESSE GASTRORESISTENTI [Concomitant]
  3. LOBIVON 5 MG COMPRESSE [Concomitant]
     Active Substance: NEBIVOLOL HYDROCHLORIDE
  4. LANTUS [Concomitant]
     Active Substance: INSULIN GLARGINE
  5. METFORMIN [Concomitant]
     Active Substance: METFORMIN HYDROCHLORIDE
  6. BRILIQUE 60 MG FILM?COATED TABLETS [Concomitant]
     Active Substance: TICAGRELOR
  7. ATORVASTATIN [Suspect]
     Active Substance: ATORVASTATIN
     Indication: HYPERCHOLESTEROLAEMIA
     Dosage: 40 MG
     Route: 048
  8. ROSUMIBE [EZETIMIBE\ROSUVASTATIN CALCIUM] [Suspect]
     Active Substance: EZETIMIBE\ROSUVASTATIN CALCIUM
     Indication: HYPERCHOLESTEROLAEMIA
     Dosage: 30 MG
     Route: 048

REACTIONS (1)
  - Hepatitis acute [Not Recovered/Not Resolved]

NARRATIVE: CASE EVENT DATE: 20210727
